FAERS Safety Report 4583304-1 (Version None)
Quarter: 2005Q1

REPORT INFORMATION
  Report Type: 
  Country: None (occurrence: None)
  Receive Date: 20050125
  Receipt Date: 20041201
  Transmission Date: 20050727
  Serious: No
  Sender: FDA-Public Use
  Company Number: USA040259703

PATIENT
  Age: 70 Year
  Sex: Female
  Weight: 72 kg

DRUGS (7)
  1. FORTEO [Suspect]
     Indication: OSTEOPOROSIS
     Dosage: 20 UG/1 DAY
     Dates: start: 20040216
  2. FOSAMAX [Concomitant]
  3. ADVAIR DISKUS 100/50 [Concomitant]
  4. SYNTHROID [Concomitant]
  5. SINGULAIR [Concomitant]
  6. VIOXX [Concomitant]
  7. BISOPROLOL FUMARATE [Concomitant]

REACTIONS (7)
  - ACCIDENTAL OVERDOSE [None]
  - DIZZINESS [None]
  - INJECTION SITE ERYTHEMA [None]
  - INJECTION SITE SWELLING [None]
  - MEDICATION ERROR [None]
  - PSYCHOMOTOR HYPERACTIVITY [None]
  - WHEEZING [None]
